FAERS Safety Report 21629733 (Version 1)
Quarter: 2022Q4

REPORT INFORMATION
  Report Type: Report from Study
  Country: US (occurrence: US)
  Receive Date: 20221122
  Receipt Date: 20221122
  Transmission Date: 20230113
  Serious: No
  Sender: FDA-Public Use
  Company Number: US-ABBVIE-22K-163-4417889-00

PATIENT
  Sex: Male

DRUGS (3)
  1. SKYRIZI [Suspect]
     Active Substance: RISANKIZUMAB-RZAA
     Indication: Psoriasis
     Dosage: WEEK 0, FORM STRENGTH: 150MG
     Route: 058
     Dates: start: 20220517, end: 20220517
  2. SKYRIZI [Suspect]
     Active Substance: RISANKIZUMAB-RZAA
     Dosage: WEEK 4, FORM STRENGTH: 150MG
     Route: 058
     Dates: start: 20220614, end: 20220614
  3. SKYRIZI [Suspect]
     Active Substance: RISANKIZUMAB-RZAA
     Dosage: FORM STRENGTH: 150MG
     Route: 058

REACTIONS (6)
  - Off label use [Unknown]
  - Therapeutic response shortened [Unknown]
  - Pain [Unknown]
  - Erythema [Unknown]
  - Increased tendency to bruise [Unknown]
  - Psoriasis [Unknown]

NARRATIVE: CASE EVENT DATE: 20220101
